FAERS Safety Report 7533317-2 (Version None)
Quarter: 2011Q2

REPORT INFORMATION
  Report Type: 
  Country: None (occurrence: None)
  Receive Date: 20110608
  Receipt Date: 20050926
  Transmission Date: 20111010
  Serious: Yes (Death, Hospitalization)
  Sender: FDA-Public Use
  Company Number: PHHO2005JP14590

PATIENT
  Sex: Male
  Weight: 58 kg

DRUGS (9)
  1. AMARYL [Concomitant]
     Dosage: UNKNOWN
  2. LECICARBON [Concomitant]
     Dosage: UNKNOWN
  3. VOLTAREN [Concomitant]
     Dosage: UNKNOWN
  4. TANATRIL [Concomitant]
     Dosage: UNKNOWN
  5. ALOSENN [Concomitant]
     Dosage: UNKNOWN
  6. GLEEVEC [Suspect]
     Indication: CHRONIC MYELOID LEUKAEMIA
     Dosage: 400 MG, QD
     Route: 048
     Dates: start: 20030109
  7. BUP-4 [Concomitant]
     Dosage: UNKNOWN
  8. SELBEX [Concomitant]
     Dosage: UNKNOWN
  9. LOXOPROFEN SODIUM [Concomitant]
     Dosage: UNKNOWN

REACTIONS (11)
  - COMA [None]
  - SPUTUM INCREASED [None]
  - LUNG ABSCESS [None]
  - SPINAL CORD INJURY THORACIC [None]
  - MUSCULOSKELETAL PAIN [None]
  - DYSPNOEA [None]
  - HYPOKINESIA [None]
  - RESPIRATORY FAILURE [None]
  - PNEUMONIA [None]
  - BACK PAIN [None]
  - C-REACTIVE PROTEIN INCREASED [None]
